FAERS Safety Report 4970165-1 (Version None)
Quarter: 2006Q2

REPORT INFORMATION
  Report Type: 
  Country: None (occurrence: None)
  Receive Date: 20060406
  Receipt Date: 20060324
  Transmission Date: 20061013
  Serious: Yes (Other)
  Sender: FDA-Public Use
  Company Number: 2006-03-1795

PATIENT
  Sex: Female

DRUGS (1)
  1. PROVENTIL [Suspect]
     Dosage: ORAL AER INH
     Route: 055

REACTIONS (2)
  - TOOTH DECALCIFICATION [None]
  - TOOTH EROSION [None]
